FAERS Safety Report 19416524 (Version 3)
Quarter: 2021Q3

REPORT INFORMATION
  Report Type: Report from Study
  Country: ES (occurrence: ES)
  Receive Date: 20210614
  Receipt Date: 20210720
  Transmission Date: 20211014
  Serious: Yes (Hospitalization)
  Sender: FDA-Public Use
  Company Number: ES-PFIZER INC-2021666160

PATIENT
  Age: 71 Year
  Sex: Male
  Weight: 86 kg

DRUGS (13)
  1. MIDAZOLAM. [Suspect]
     Active Substance: MIDAZOLAM
     Dosage: UNK, DAY ?7, DAY 1 AND DAY 14
     Route: 048
     Dates: start: 20210120, end: 20210209
  2. VILANTEROL [Concomitant]
     Active Substance: VILANTEROL TRIFENATATE
     Indication: CHRONIC OBSTRUCTIVE PULMONARY DISEASE
     Dosage: 92 UG, 1X/DAY
     Route: 055
  3. LEVOTHYROXINE SODIUM. [Concomitant]
     Active Substance: LEVOTHYROXINE SODIUM
     Indication: HYPOTHYROIDISM
     Dosage: 100 UG, 1X/DAY
     Route: 048
  4. DEXAMETHASONE. [Concomitant]
     Active Substance: DEXAMETHASONE
     Indication: BONE PAIN
     Dosage: 4 MG, 1X/DAY
     Route: 048
     Dates: start: 20210209
  5. ENCORAFENIB [Suspect]
     Active Substance: ENCORAFENIB
     Indication: NEOPLASM
     Dosage: 450 MG, ONCE DAILY CONTINUOUS SINCE DAY 1
     Route: 048
     Dates: start: 20210127, end: 20210604
  6. DEXTROMETHORPHAN [Suspect]
     Active Substance: DEXTROMETHORPHAN
     Dosage: UNK, DAY ?7, DAY 1 AND DAY 14
     Route: 048
     Dates: start: 20210120, end: 20210209
  7. TIOTROPIUM BROMIDE [Concomitant]
     Active Substance: TIOTROPIUM BROMIDE
     Indication: CHRONIC OBSTRUCTIVE PULMONARY DISEASE
     Dosage: 18 UG, 1X/DAY
     Route: 055
  8. CAFFEINE. [Suspect]
     Active Substance: CAFFEINE
     Dosage: UNK, DAY ?7, DAY 1 AND DAY 14
     Route: 048
     Dates: start: 20210120, end: 20210209
  9. BINIMETINIB [Suspect]
     Active Substance: BINIMETINIB
     Indication: NEOPLASM
     Dosage: 45 MG, TWICE DAILY CONTINUOUS SINCE DAY 1
     Route: 048
     Dates: start: 20210127, end: 20210604
  10. MORPHINE [MORPHINE SULFATE] [Concomitant]
     Indication: BONE PAIN
     Dosage: 25 MG, 2X/DAY
     Route: 048
     Dates: start: 20210315
  11. LOSARTAN. [Suspect]
     Active Substance: LOSARTAN
     Dosage: UNK, DAY ?7, DAY 1 AND DAY 14
     Route: 048
     Dates: start: 20210120, end: 20210209
  12. OMEPRAZOLE. [Suspect]
     Active Substance: OMEPRAZOLE
     Dosage: UNK, DAY ?7, DAY 1 AND DAY 14
     Route: 048
     Dates: start: 20210120, end: 20210209
  13. FLUTICASONE FUROATE [Concomitant]
     Active Substance: FLUTICASONE FUROATE
     Indication: CHRONIC OBSTRUCTIVE PULMONARY DISEASE
     Dosage: 22 UG, 1X/DAY
     Route: 055

REACTIONS (1)
  - Head injury [Recovered/Resolved]

NARRATIVE: CASE EVENT DATE: 20210604
